FAERS Safety Report 16367766 (Version 2)
Quarter: 2019Q2

REPORT INFORMATION
  Report Type: Spontaneous
  Country: US (occurrence: US)
  Receive Date: 20190529
  Receipt Date: 20190605
  Transmission Date: 20190711
  Serious: Yes (Death)
  Sender: FDA-Public Use
  Company Number: US-PFIZER INC-2019227783

PATIENT
  Age: 56 Year
  Sex: Female

DRUGS (6)
  1. PREDNISONE. [Suspect]
     Active Substance: PREDNISONE
     Indication: ENTEROCOLITIS
     Dosage: 10 UNK, UNK (PREDNISONE 10 MG)
  2. GANCICLOVIR. [Suspect]
     Active Substance: GANCICLOVIR
     Indication: EVIDENCE BASED TREATMENT
     Dosage: UNK
  3. PREDNISONE. [Suspect]
     Active Substance: PREDNISONE
     Indication: IMMUNE-MEDIATED ENTEROCOLITIS
     Dosage: 20 MG, 4X/DAY
     Route: 048
  4. PREDNISONE. [Suspect]
     Active Substance: PREDNISONE
     Indication: ENTERITIS
     Dosage: 5 MG, WEEKLY
  5. LOPERAMIDE [Suspect]
     Active Substance: LOPERAMIDE
     Indication: ENTEROCOLITIS
     Dosage: UNK
  6. METHYLPREDNISOLONE SODIUM SUCCINATE. [Suspect]
     Active Substance: METHYLPREDNISOLONE SODIUM SUCCINATE
     Dosage: 20 MG, 3X/DAY (HIGH-DOSE)
     Route: 042

REACTIONS (4)
  - Death [Fatal]
  - Condition aggravated [Fatal]
  - Multiple organ dysfunction syndrome [Fatal]
  - Drug ineffective [Unknown]
